FAERS Safety Report 5246968-5 (Version None)
Quarter: 2007Q1

REPORT INFORMATION
  Report Type: 
  Country: None (occurrence: None)
  Receive Date: 20070226
  Receipt Date: 20070222
  Transmission Date: 20070707
  Serious: Yes (Other)
  Sender: FDA-Public Use
  Company Number: US-GLAXOSMITHKLINE-A0640620A

PATIENT
  Sex: Male
  Weight: 1.5 kg

DRUGS (4)
  1. PAXIL [Suspect]
     Indication: POST-TRAUMATIC STRESS DISORDER
     Dosage: 40MG PER DAY
  2. PAROXETINE HYDROCHLORIDE [Suspect]
     Indication: DEPRESSION
     Dosage: 40MG PER DAY
  3. PHENOBARBITAL TAB [Concomitant]
  4. XANAX [Concomitant]

REACTIONS (10)
  - ATTENTION DEFICIT/HYPERACTIVITY DISORDER [None]
  - DIARRHOEA [None]
  - DRUG EXPOSURE DURING PREGNANCY [None]
  - GASTROOESOPHAGEAL REFLUX DISEASE [None]
  - LEARNING DISABILITY [None]
  - PREMATURE BABY [None]
  - SMALL FOR DATES BABY [None]
  - UNDERWEIGHT [None]
  - VISUAL ACUITY REDUCED [None]
  - VOMITING [None]
